FAERS Safety Report 9094226 (Version 2)
Quarter: 2013Q1

REPORT INFORMATION
  Report Type: Spontaneous
  Country: US (occurrence: None)
  Receive Date: 20130122
  Receipt Date: 20130123
  Transmission Date: 20140127
  Serious: Yes (Other)
  Sender: FDA-Public Use
  Company Number: JPI-P-028974

PATIENT
  Age: 44 Year
  Sex: Female
  Weight: 60.78 kg

DRUGS (8)
  1. XYREM (500 MILLIGRAM/MILLILITERS, SOLUTION) (SODIUM OXYBATE) [Suspect]
     Indication: SLEEP APNOEA SYNDROME
     Route: 048
     Dates: start: 200905
  2. XYREM (500 MILLIGRAM/MILLILITERS, SOLUTION) (SODIUM OXYBATE) [Suspect]
     Indication: SLEEP DISORDER
     Route: 048
     Dates: start: 200905
  3. LORAZEPAM [Concomitant]
  4. LISINOPRIL [Concomitant]
  5. LEVOTHYROXINE SODIUM [Concomitant]
  6. DEXTROAMPHYETAMINE [Concomitant]
  7. METOPROLOL [Concomitant]
  8. ALPRAZOLAM [Concomitant]

REACTIONS (4)
  - Dysmenorrhoea [None]
  - Uterine infection [None]
  - Uterine haemorrhage [None]
  - Uterine operation [None]
